FAERS Safety Report 8421765-8 (Version None)
Quarter: 2012Q2

REPORT INFORMATION
  Report Type: 
  Country: None (occurrence: None)
  Receive Date: 20120608
  Receipt Date: 20120529
  Transmission Date: 20120825
  Serious: Yes (Hospitalization, Other)
  Sender: FDA-Public Use
  Company Number: US-ASTRAZENECA-2010SE07101

PATIENT
  Age: 60 Year
  Sex: Female
  Weight: 90.7 kg

DRUGS (8)
  1. PRILOSEC OTC [Suspect]
     Route: 048
  2. RANITIDINE [Suspect]
     Route: 065
  3. BENAZEPRIL HYDROCHLORIDE [Concomitant]
  4. NEXIUM [Suspect]
     Route: 048
     Dates: start: 20000101, end: 20090601
  5. GABAPENTIN [Concomitant]
  6. PRILOSEC [Suspect]
     Dosage: GENERIC
     Route: 048
  7. HYDROXYZINE [Concomitant]
  8. BLOOD PRESSURE PILL [Concomitant]

REACTIONS (25)
  - CEREBROVASCULAR ACCIDENT [None]
  - PANCREATIC INSUFFICIENCY [None]
  - GASTRIC DISORDER [None]
  - HAEMOPTYSIS [None]
  - GASTROOESOPHAGEAL REFLUX DISEASE [None]
  - MALAISE [None]
  - RETINAL INJURY [None]
  - THROAT LESION [None]
  - WEIGHT INCREASED [None]
  - VOMITING [None]
  - ADVERSE EVENT [None]
  - PAIN [None]
  - DRUG INEFFECTIVE [None]
  - EROSIVE OESOPHAGITIS [None]
  - HAEMATEMESIS [None]
  - VOCAL CORD DISORDER [None]
  - ABDOMINAL PAIN [None]
  - ASTHENIA [None]
  - DRUG DOSE OMISSION [None]
  - DYSPEPSIA [None]
  - NAUSEA [None]
  - OESOPHAGEAL HAEMORRHAGE [None]
  - APHAGIA [None]
  - OESOPHAGEAL DISORDER [None]
  - DYSPHAGIA [None]
